FAERS Safety Report 6166737-1 (Version None)
Quarter: 2009Q2

REPORT INFORMATION
  Report Type: 
  Country: None (occurrence: None)
  Receive Date: 20090424
  Receipt Date: 20090403
  Transmission Date: 20091009
  Serious: Yes (Hospitalization)
  Sender: FDA-Public Use
  Company Number: FR-PFIZER INC-2009194251

PATIENT

DRUGS (6)
  1. BLINDED *PLACEBO [Suspect]
     Indication: CARDIAC FAILURE
     Dosage: UNK
     Route: 048
     Dates: start: 20071108
  2. BLINDED EPLERENONE [Suspect]
     Indication: CARDIAC FAILURE
     Dosage: UNK
     Route: 048
     Dates: start: 20071108
  3. LASIX [Concomitant]
     Dosage: UNK
     Route: 048
     Dates: start: 20071001
  4. ZESTRIL [Concomitant]
     Dosage: UNK
     Route: 048
     Dates: start: 20010101
  5. BISOPROLOL [Concomitant]
     Dosage: UNK
     Route: 048
     Dates: start: 20071001
  6. ROSUVASTATIN [Concomitant]
     Dosage: UNK
     Route: 048
     Dates: start: 20071001

REACTIONS (1)
  - CATHETERISATION CARDIAC ABNORMAL [None]
